FAERS Safety Report 18273073 (Version 1)
Quarter: 2020Q3

REPORT INFORMATION
  Report Type: Spontaneous
  Country: FR (occurrence: FR)
  Receive Date: 20200916
  Receipt Date: 20200916
  Transmission Date: 20201103
  Serious: Yes (Hospitalization)
  Sender: FDA-Public Use
  Company Number: FR-MYLANLABS-2020M1078174

PATIENT
  Age: 86 Year
  Sex: Male
  Weight: 58 kg

DRUGS (13)
  1. MANIDIPINE [Concomitant]
     Active Substance: MANIDIPINE
     Dosage: UNK
  2. IRBESARTAN. [Concomitant]
     Active Substance: IRBESARTAN
     Dosage: UNK
  3. IXPRIM [Suspect]
     Active Substance: ACETAMINOPHEN\TRAMADOL HYDROCHLORIDE
     Indication: PAIN
     Dosage: 3 DOSAGE FORM, QD
     Route: 048
     Dates: start: 20200805, end: 20200808
  4. LEVOTHYROXINE SODIQUE [Concomitant]
     Active Substance: LEVOTHYROXINE SODIUM
     Dosage: UNK
  5. PERINDOPRIL/INDAPAMIDE BIOGARAN [Concomitant]
     Active Substance: INDAPAMIDE\PERINDOPRIL ERBUMINE
  6. GLICLAZIDE [Concomitant]
     Active Substance: GLICLAZIDE
     Dosage: UNK
  7. TROSPIUM                           /00376202/ [Concomitant]
     Active Substance: TROSPIUM CHLORIDE
     Dosage: UNK
  8. VALACICLOVIR [Suspect]
     Active Substance: VALACYCLOVIR HYDROCHLORIDE
     Indication: HERPES ZOSTER
     Dosage: 2000 MILLIGRAM, QD
     Route: 048
     Dates: start: 20200810, end: 20200810
  9. PREDNISOLONE. [Suspect]
     Active Substance: PREDNISOLONE
     Indication: PAIN
     Dosage: 40 MILLIGRAM, QD
     Route: 048
     Dates: start: 20200808, end: 20200810
  10. DEXERYL                            /01579901/ [Suspect]
     Active Substance: GLYCERIN\MINERAL OIL\PETROLATUM
     Indication: DRY SKIN
     Dosage: UNK
     Route: 003
     Dates: start: 20200808
  11. DICLOFENAC [Suspect]
     Active Substance: DICLOFENAC
     Indication: PAIN
     Dosage: 2 DOSAGE FORM, QD
     Route: 003
     Dates: start: 20200805, end: 20200806
  12. KARDEGIC [Concomitant]
     Active Substance: ASPIRIN DL-LYSINE
  13. METFORMINE                         /00082701/ [Concomitant]
     Active Substance: METFORMIN HYDROCHLORIDE
     Dosage: UNK

REACTIONS (2)
  - Pruritus [Recovered/Resolved]
  - Rash erythematous [Recovered/Resolved]

NARRATIVE: CASE EVENT DATE: 20200810
